FAERS Safety Report 10472357 (Version 2)
Quarter: 2014Q4

REPORT INFORMATION
  Report Type: Spontaneous
  Country: JP (occurrence: JP)
  Receive Date: 20140924
  Receipt Date: 20141128
  Transmission Date: 20150528
  Serious: Yes (Life-Threatening)
  Sender: FDA-Public Use
  Company Number: JP-009507513-1409JPN006591

PATIENT
  Age: 67 Year
  Sex: Female
  Weight: 67 kg

DRUGS (9)
  1. DEPAKENE [Concomitant]
     Active Substance: VALPROIC ACID
     Dosage: 800 MG, DIVIDED DOSE FREQUENCY UNKNOWN
     Route: 048
     Dates: start: 201405
  2. BETAMETHASONE [Concomitant]
     Active Substance: BETAMETHASONE
     Dosage: 2 MG, DIVIDED DOSE FREQUENCY UNKNOWN
     Route: 048
     Dates: start: 201406, end: 201407
  3. SULFAMETHOXAZOLE AND TRIMETHOPRIM [Suspect]
     Active Substance: SULFAMETHOXAZOLE\TRIMETHOPRIM
     Indication: PROPHYLAXIS
  4. LANSOPRAZOLE. [Concomitant]
     Active Substance: LANSOPRAZOLE
     Dosage: 15 MG, QD. DEVIDED DOSE FREQUENCY UNKNOWN
     Route: 048
     Dates: start: 201405
  5. SULFAMETHOXAZOLE AND TRIMETHOPRIM [Suspect]
     Active Substance: SULFAMETHOXAZOLE\TRIMETHOPRIM
     Indication: ANTIFUNGAL PROPHYLAXIS
     Dosage: 2 G, BID, TWICE WEEKLY
     Route: 048
     Dates: start: 20140616, end: 20140817
  6. ATORVASTATIN [Concomitant]
     Active Substance: ATORVASTATIN
     Dosage: 10 MG, UNK. DEVIDED DOSE FREQUENCY UNKNOWN
     Route: 048
     Dates: start: 201405
  7. TEMODAL [Suspect]
     Active Substance: TEMOZOLOMIDE
     Indication: GLIOBLASTOMA
     Dosage: 120 MG, DIVIDED DOSE FREQUENCY UNKNOWN, 100 MG CAPSULE AND 20 MG CAPSULE, 75 MG/M2
     Route: 048
     Dates: start: 20140616, end: 20140724
  8. SINSERON [Concomitant]
     Dosage: 8 MG, QD.  DEVIDED DOSE FREQUENCY UNKNOWN
     Route: 048
     Dates: start: 20140616
  9. GLIADEL [Concomitant]
     Active Substance: CARMUSTINE
     Indication: GLIOBLASTOMA
     Dosage: 23.1 MG, UNK. 3 WAFERS PLACED
     Route: 036
     Dates: start: 20140514

REACTIONS (1)
  - Agranulocytosis [Recovered/Resolved]

NARRATIVE: CASE EVENT DATE: 20140724
